FAERS Safety Report 6129585-4 (Version None)
Quarter: 2009Q1

REPORT INFORMATION
  Report Type: 
  Country: None (occurrence: None)
  Receive Date: 20090324
  Receipt Date: 20081202
  Transmission Date: 20090719
  Serious: No
  Sender: FDA-Public Use
  Company Number: A0758715A

PATIENT

DRUGS (1)
  1. AVANDARYL [Suspect]
     Route: 048

REACTIONS (1)
  - WEIGHT INCREASED [None]
